FAERS Safety Report 4797225-2 (Version None)
Quarter: 2005Q4

REPORT INFORMATION
  Report Type: 
  Country: None (occurrence: None)
  Receive Date: 20051013
  Receipt Date: 20050916
  Transmission Date: 20060501
  Serious: Yes (Hospitalization, Disabling)
  Sender: FDA-Public Use
  Company Number: US-MERCK-0509USA02367

PATIENT
  Age: 58 Year
  Sex: Female

DRUGS (8)
  1. BENICAR [Concomitant]
     Route: 065
  2. VIOXX [Suspect]
     Indication: SHOULDER PAIN
     Route: 048
     Dates: start: 20030227, end: 20040101
  3. COVERA-HS [Concomitant]
     Route: 065
  4. TOPROL-XL [Concomitant]
     Route: 048
  5. PLAVIX [Concomitant]
     Route: 065
  6. LIPITOR [Concomitant]
     Route: 065
  7. VASOTEC [Concomitant]
     Route: 048
  8. HYDROCHLOROTHIAZIDE AND TRIAMTERENE [Concomitant]
     Route: 065

REACTIONS (7)
  - ACUTE MYOCARDIAL INFARCTION [None]
  - ANGINA PECTORIS [None]
  - CORONARY ARTERY DISEASE [None]
  - MYOCARDIAL INFARCTION [None]
  - PERICARDIOTOMY [None]
  - POSTINFARCTION ANGINA [None]
  - POSTPERICARDIOTOMY SYNDROME [None]
